FAERS Safety Report 13391349 (Version 1)
Quarter: 2017Q1

REPORT INFORMATION
  Report Type: Spontaneous
  Country: FR (occurrence: FR)
  Receive Date: 20170331
  Receipt Date: 20170331
  Transmission Date: 20170429
  Serious: Yes (Hospitalization)
  Sender: FDA-Public Use
  Company Number: FR-PFIZER INC-2017134745

PATIENT
  Age: 81 Year
  Sex: Female

DRUGS (23)
  1. SPASFON LYOC [Concomitant]
     Active Substance: PHLOROGLUCINOL
     Dosage: ONE TO THREE DOSAGE FORMS DAILY
  2. CRESTOR [Concomitant]
     Active Substance: ROSUVASTATIN CALCIUM
     Dosage: 10 MG, 1X/DAY
  3. TEMESTA /00273201/ [Concomitant]
     Active Substance: LORAZEPAM
     Dosage: FIVE TO SIX DAILY INTAKES
  4. DAFALGAN [Concomitant]
     Active Substance: ACETAMINOPHEN
     Dosage: ONE TO TWO CAPSULES (500 -1000 MG) ONCE TO THREE TIMES DAILY
  5. SMECTA [Concomitant]
     Active Substance: MONTMORILLONITE
     Dosage: 3 G, ONCE OR TWICE DAILY
  6. VISMED [Concomitant]
     Active Substance: HYALURONATE SODIUM
     Dosage: 1 GTT, FIVE TIMES DAILY
  7. VITAMINE A [Concomitant]
     Active Substance: RETINOL
     Dosage: 1 GTT, 1X/DAY
  8. DIOSMINE [Concomitant]
     Active Substance: DIOSMIN
     Dosage: 600 MG, 1X/DAY
  9. STRESAM [Concomitant]
     Active Substance: ETIFOXINE
     Dosage: 2 DF, 2X/DAY
  10. FLECTOR /00372302/ [Concomitant]
     Active Substance: DICLOFENAC SODIUM
     Dosage: ONCE TO TWICE DAILY APPLICATIONS
  11. OROPERIDYS [Concomitant]
     Active Substance: DOMPERIDONE
     Dosage: ONE TABLET TWICE TO THREE TIMES DAILY
  12. MOVICOL [Concomitant]
     Active Substance: POLYETHYLENE GLYCOL 3350\POTASSIUM CHLORIDE\SODIUM BICARBONATE\SODIUM CHLORIDE
     Dosage: TWO TO THREE DOSAGE FORMS, 1X/DAY
  13. TRIMEBUTINE [Concomitant]
     Active Substance: TRIMEBUTINE
     Dosage: 200 MG, 2X/DAY
  14. EDUCTYL [Concomitant]
     Active Substance: POTASSIUM BITARTRATE\SODIUM BICARBONATE
     Dosage: 1 DF, 1X/DAY
  15. IZALGI [Concomitant]
     Active Substance: ACETAMINOPHEN\OPIUM
     Indication: PAIN
     Dosage: 2 DF, AS NEEDED (THREE TO FOUR TIMES DAILY)
  16. COKENZEN [Suspect]
     Active Substance: CANDESARTAN CILEXETIL\HYDROCHLOROTHIAZIDE
     Indication: HYPERTENSION
     Dosage: 1 DF, DAILY
     Route: 048
     Dates: start: 201304, end: 20170223
  17. FLUIDABAK [Concomitant]
     Active Substance: POVIDONE
     Dosage: 1 GTT, FIVE TIMES DAILY
  18. IBUPROFEN. [Concomitant]
     Active Substance: IBUPROFEN
     Dosage: 400 MG, 3X/DAY
  19. CACIT VITAMINE D3 [Concomitant]
     Active Substance: CALCIUM CARBONATE\CHOLECALCIFEROL
     Dosage: 1 DF, 1X/DAY
  20. EUPANTOL [Suspect]
     Active Substance: PANTOPRAZOLE SODIUM
     Dosage: 20 MG, 1X/DAY
     Route: 048
     Dates: end: 20170304
  21. KARDEGIC [Concomitant]
     Active Substance: ASPIRIN LYSINE
     Dosage: 75 MG, 1X/DAY
  22. IMOVANE [Concomitant]
     Active Substance: ZOPICLONE
     Dosage: ONE TO TWO TABLETS DAILY AT BED TIME
  23. NORMACOL LAVEMENT [Concomitant]
     Active Substance: SODIUM PHOSPHATE, DIBASIC\SODIUM PHOSPHATE, MONOBASIC
     Dosage: UNK

REACTIONS (2)
  - Fall [Unknown]
  - Hyponatraemia [Recovering/Resolving]

NARRATIVE: CASE EVENT DATE: 20170223
